FAERS Safety Report 9244571 (Version 1)
Quarter: 2013Q2

REPORT INFORMATION
  Report Type: Spontaneous
  Country: VE (occurrence: VE)
  Receive Date: 20130422
  Receipt Date: 20130422
  Transmission Date: 20140414
  Serious: Yes (Hospitalization, Other)
  Sender: FDA-Public Use
  Company Number: PHHY2013VE036068

PATIENT
  Age: 75 Year
  Sex: Male

DRUGS (8)
  1. TEGRETOL [Suspect]
     Indication: CONVULSION
     Dosage: 3 DF, DAILY
     Route: 048
     Dates: start: 1970
  2. LYRICA [Concomitant]
     Indication: FACIAL PAIN
     Dosage: UNK
     Route: 048
  3. OXINORM [Concomitant]
     Dosage: UNK UKN, UNK
     Route: 048
  4. CORASPIRINA [Concomitant]
     Dosage: UNK UKN, UNK
     Route: 048
  5. OMEPRAZOLE [Concomitant]
     Dosage: UNK UKN, UNK
     Route: 048
  6. PLAVIX [Concomitant]
     Dosage: UNK UKN, UNK
     Route: 048
  7. ATORVASTATIN [Concomitant]
     Dosage: UNK UKN, UNK
     Route: 048
  8. PROTELOS [Concomitant]
     Dosage: UNK UKN, UNK
     Route: 048

REACTIONS (7)
  - Large intestine benign neoplasm [Recovered/Resolved]
  - Gastrointestinal infection [Recovered/Resolved]
  - Appendicitis [Recovered/Resolved]
  - Inguinal hernia [Not Recovered/Not Resolved]
  - Osteoporosis [Unknown]
  - Spinal deformity [Not Recovered/Not Resolved]
  - Cerebrovascular accident [Recovered/Resolved]
